FAERS Safety Report 9412979 (Version 3)
Quarter: 2013Q4

REPORT INFORMATION
  Report Type: Spontaneous
  Country: US (occurrence: US)
  Receive Date: 20130722
  Receipt Date: 20131209
  Transmission Date: 20140711
  Serious: Yes (Other)
  Sender: FDA-Public Use
  Company Number: US-ROCHE-707216

PATIENT
  Age: 18 Year
  Sex: Female
  Weight: 48.5 kg

DRUGS (2)
  1. ACCUTANE [Suspect]
     Indication: ACNE
     Route: 065
  2. ACCUTANE [Suspect]
     Dosage: TABLET AND CAPSULE
     Route: 065
     Dates: start: 20010423, end: 200107

REACTIONS (11)
  - Inflammatory bowel disease [Unknown]
  - Crohn^s disease [Unknown]
  - Colitis [Unknown]
  - Colitis ulcerative [Unknown]
  - Large intestine polyp [Unknown]
  - Lip dry [Unknown]
  - Back pain [Unknown]
  - Dry skin [Unknown]
  - Protein total increased [Unknown]
  - Globulins increased [Unknown]
  - Nephrolithiasis [Unknown]
